FAERS Safety Report 12789839 (Version 2)
Quarter: 2016Q4

REPORT INFORMATION
  Report Type: Spontaneous
  Country: CA (occurrence: CA)
  Receive Date: 20160928
  Receipt Date: 20161124
  Transmission Date: 20170207
  Serious: Yes (Hospitalization, Other)
  Sender: FDA-Public Use
  Company Number: CA-JNJFOC-20160926979

PATIENT
  Sex: Male

DRUGS (13)
  1. DILTIAZEM. [Concomitant]
     Active Substance: DILTIAZEM
     Route: 065
  2. METFORMIN [Concomitant]
     Active Substance: METFORMIN HYDROCHLORIDE
     Route: 065
  3. SYNTHROID [Concomitant]
     Active Substance: LEVOTHYROXINE SODIUM
     Route: 065
  4. DEXILANT [Concomitant]
     Active Substance: DEXLANSOPRAZOLE
     Route: 065
  5. LOPRESSOR [Concomitant]
     Active Substance: METOPROLOL TARTRATE
     Route: 065
  6. FERROUS CHLORIDE [Concomitant]
     Active Substance: FERROUS CHLORIDE
     Route: 065
  7. ASA [Concomitant]
     Active Substance: ASPIRIN
     Route: 065
  8. XARELTO [Suspect]
     Active Substance: RIVAROXABAN
     Indication: PRODUCT USED FOR UNKNOWN INDICATION
     Route: 048
     Dates: start: 201311
  9. DILANTIN [Concomitant]
     Active Substance: PHENYTOIN
     Route: 065
  10. DILTIAZEM. [Concomitant]
     Active Substance: DILTIAZEM
     Route: 065
  11. PLAVIX [Concomitant]
     Active Substance: CLOPIDOGREL BISULFATE
     Route: 065
  12. LIPITOR [Concomitant]
     Active Substance: ATORVASTATIN CALCIUM
     Route: 065
  13. ALTACE [Concomitant]
     Active Substance: RAMIPRIL
     Route: 065

REACTIONS (2)
  - Thrombosis [Unknown]
  - Hospitalisation [Unknown]

NARRATIVE: CASE EVENT DATE: 201508
